FAERS Safety Report 4291369-X (Version None)
Quarter: 2004Q1

REPORT INFORMATION
  Report Type: 
  Country: None (occurrence: None)
  Receive Date: 20040206
  Receipt Date: 20040206
  Transmission Date: 20041129
  Serious: Yes (Other)
  Sender: FDA-Public Use
  Company Number: None

PATIENT
  Age: 20 Year
  Sex: Female
  Weight: 55.7924 kg

DRUGS (5)
  1. VIT D  50,000 IV (PLIVA) [Suspect]
     Indication: MALABSORPTION
     Dosage: ONE/WK PO
     Route: 048
     Dates: start: 20040126
  2. VIT D  50,000 IV (PLIVA) [Suspect]
     Indication: NAUSEA
     Dosage: ONE/WK PO
     Route: 048
     Dates: start: 20040126
  3. VIT D  50,000 IV (PLIVA) [Suspect]
     Indication: VITAMIN D DEFICIENCY
     Dosage: ONE/WK PO
     Route: 048
     Dates: start: 20040126
  4. VIT D  50,000 IV (PLIVA) [Suspect]
     Indication: VOMITING
     Dosage: ONE/WK PO
     Route: 048
     Dates: start: 20040126
  5. NORTRIPTYLINE HCL [Concomitant]

REACTIONS (2)
  - LETHARGY [None]
  - NAUSEA [None]
